FAERS Safety Report 5529418-0 (Version None)
Quarter: 2007Q4

REPORT INFORMATION
  Report Type: 
  Country: None (occurrence: None)
  Receive Date: 20071129
  Receipt Date: 20071121
  Transmission Date: 20080405
  Serious: Yes (Hospitalization, Other)
  Sender: FDA-Public Use
  Company Number: FR-BRISTOL-MYERS SQUIBB COMPANY-13991039

PATIENT
  Age: 53 Year
  Sex: Female

DRUGS (1)
  1. ORENCIA [Suspect]
     Indication: RHEUMATOID ARTHRITIS
     Dosage: EVENTS OCCURED AFTER 5TH AND 6TH INFUSIONS.
     Dates: start: 20070601

REACTIONS (2)
  - PNEUMONIA PNEUMOCOCCAL [None]
  - PULMONARY HYPERTENSION [None]
